FAERS Safety Report 4771236-5 (Version None)
Quarter: 2005Q3

REPORT INFORMATION
  Report Type: 
  Country: None (occurrence: None)
  Receive Date: 20050914
  Receipt Date: 20050829
  Transmission Date: 20060218
  Serious: Yes (Other)
  Sender: FDA-Public Use
  Company Number: 2005BI010637

PATIENT
  Age: 59 Year
  Sex: Female
  Weight: 62.1428 kg

DRUGS (9)
  1. AMEVIVE [Suspect]
     Indication: PSORIASIS
     Dosage: 15 MG; QW; IM
     Route: 030
     Dates: start: 20030529, end: 20030814
  2. AMEVIVE [Suspect]
     Indication: PSORIASIS
     Dosage: 15 MG; QW; IM
     Route: 030
     Dates: start: 20050526
  3. METHOTREXATE [Concomitant]
  4. HYZAAR [Concomitant]
  5. SUDAFED 12 HOUR [Concomitant]
  6. TYLENOL [Concomitant]
  7. FOLIC ACID [Concomitant]
  8. CENESTIN [Concomitant]
  9. CYCLOSPORINE [Concomitant]

REACTIONS (11)
  - AORTIC VALVE INCOMPETENCE [None]
  - AUTOIMMUNE HEPATITIS [None]
  - CONDITION AGGRAVATED [None]
  - DIZZINESS [None]
  - HEPATIC FIBROSIS [None]
  - HERPES SIMPLEX [None]
  - LYMPHADENOPATHY [None]
  - NASOPHARYNGITIS [None]
  - NECK MASS [None]
  - PSORIASIS [None]
  - SINUSITIS [None]
